FAERS Safety Report 8467024-9 (Version None)
Quarter: 2012Q2

REPORT INFORMATION
  Report Type: 
  Country: None (occurrence: None)
  Receive Date: 20120626
  Receipt Date: 20120618
  Transmission Date: 20120825
  Serious: Yes (Hospitalization)
  Sender: FDA-Public Use
  Company Number: FR-UCBSA-060000

PATIENT
  Age: 51 Year
  Sex: Male

DRUGS (7)
  1. AMOXICILLIN [Suspect]
     Indication: MENINGITIS
     Dosage: DAILY DOSE :12 G
     Route: 042
     Dates: start: 20120427, end: 20120502
  2. CEFTRIAXONE [Suspect]
     Indication: MENINGITIS
     Route: 042
     Dates: start: 20120427, end: 20120502
  3. CRESTOR [Concomitant]
     Indication: HYPERCHOLESTEROLAEMIA
     Route: 048
  4. ACETAMINOPHEN [Concomitant]
     Dates: start: 20120424
  5. ACYCLOVIR [Suspect]
     Indication: MENINGITIS
     Route: 042
     Dates: start: 20120427, end: 20120502
  6. KEPPRA [Suspect]
     Indication: ENCEPHALITIS
     Route: 048
     Dates: start: 20120427
  7. COLCHICINE OPACALCIUM [Concomitant]
     Indication: HYPERURICAEMIA
     Route: 048

REACTIONS (1)
  - CYTOLYTIC HEPATITIS [None]
